FAERS Safety Report 5400990-4 (Version None)
Quarter: 2007Q3

REPORT INFORMATION
  Report Type: 
  Country: None (occurrence: None)
  Receive Date: 20070730
  Receipt Date: 20070724
  Transmission Date: 20080115
  Serious: Yes (Other)
  Sender: FDA-Public Use
  Company Number: JP-BRISTOL-MYERS SQUIBB COMPANY-13833850

PATIENT
  Age: 8 Year
  Sex: Male

DRUGS (5)
  1. PARAPLATIN [Suspect]
     Indication: RETINOBLASTOMA BILATERAL
     Route: 041
  2. VEPESID [Suspect]
     Indication: RETINOBLASTOMA BILATERAL
  3. ONCOVIN [Concomitant]
     Indication: RETINOBLASTOMA
     Route: 042
  4. CYCLOPHOSPHAMIDE [Concomitant]
     Indication: RETINOBLASTOMA
  5. PIRARUBICIN HCL [Concomitant]
     Indication: RETINOBLASTOMA
     Route: 042

REACTIONS (1)
  - EWING'S SARCOMA [None]
